FAERS Safety Report 7125220 (Version 2)
Quarter: 2014Q3

REPORT INFORMATION
  Report Type: Spontaneous
  Country: US (occurrence: None)
  Receive Date: 20090910
  Receipt Date: 20140926
  Transmission Date: 20150326
  Serious: No
  Sender: FDA-Public Use
  Company Number: 2009S1006953

PATIENT
  Sex: Male
  Weight: 82 kg

DRUGS (5)
  1. XENADERM [Concomitant]
     Active Substance: BALSAM PERU OIL\CASTOR OIL\TRYPSIN
  2. PHOSPHO-SODA [Suspect]
     Active Substance: SODIUM PHOSPHATE, DIBASIC\SODIUM PHOSPHATE, MONOBASIC
     Indication: COLONOSCOPY
     Dosage: PO
     Route: 048
     Dates: start: 200706, end: 200706
  3. PRILOSEC (OMEPRAZOLE) [Concomitant]
     Active Substance: OMEPRAZOLE MAGNESIUM
  4. COUMADIN [Concomitant]
     Active Substance: WARFARIN SODIUM
  5. NEXIUM [Concomitant]
     Active Substance: ESOMEPRAZOLE MAGNESIUM

REACTIONS (9)
  - Renal failure chronic [None]
  - Bladder outlet obstruction [None]
  - Asthenia [None]
  - Renal failure acute [None]
  - Dialysis [None]
  - Hyperparathyroidism [None]
  - Urinary tract infection [None]
  - Deep vein thrombosis [None]
  - Nephrogenic anaemia [None]
